FAERS Safety Report 8448583-9 (Version None)
Quarter: 2012Q2

REPORT INFORMATION
  Report Type: 
  Country: None (occurrence: None)
  Receive Date: 20120619
  Receipt Date: 20120605
  Transmission Date: 20120825
  Serious: Yes (Other)
  Sender: FDA-Public Use
  Company Number: CN-ROCHE-1078972

PATIENT
  Age: 40 Year
  Sex: Female

DRUGS (5)
  1. CLOPIDOGREL [Suspect]
     Indication: ANTIPLATELET THERAPY
     Route: 048
  2. DOPAMINE HCL [Concomitant]
     Indication: CARDIOGENIC SHOCK
  3. ALTEPLASE [Suspect]
     Indication: MYOCARDIAL INFARCTION
     Route: 042
  4. SODIUM CHLORIDE [Concomitant]
     Indication: CARDIOGENIC SHOCK
  5. ASPIRIN [Suspect]
     Indication: ANTIPLATELET THERAPY
     Route: 048

REACTIONS (2)
  - BUNDLE BRANCH BLOCK RIGHT [None]
  - GASTROINTESTINAL HAEMORRHAGE [None]
